FAERS Safety Report 5521987-X (Version None)
Quarter: 2007Q4

REPORT INFORMATION
  Report Type: 
  Country: None (occurrence: None)
  Receive Date: 20071120
  Receipt Date: 20070802
  Transmission Date: 20080405
  Serious: No
  Sender: FDA-Public Use
  Company Number: US-BRISTOL-MYERS SQUIBB COMPANY-13866793

PATIENT
  Age: 46 Year
  Sex: Female

DRUGS (3)
  1. AVALIDE [Suspect]
  2. LOTREL [Suspect]
  3. ALTACE [Suspect]

REACTIONS (1)
  - ALOPECIA [None]
